FAERS Safety Report 23083804 (Version 1)
Quarter: 2023Q4

REPORT INFORMATION
  Report Type: Spontaneous
  Country: US (occurrence: US)
  Receive Date: 20231019
  Receipt Date: 20231019
  Transmission Date: 20240109
  Serious: Yes (Life-Threatening, Hospitalization)
  Sender: FDA-Public Use
  Company Number: US-TEVA-2023-US-2935254

PATIENT
  Age: 14 Year
  Sex: Female

DRUGS (1)
  1. VERAPAMIL [Suspect]
     Active Substance: VERAPAMIL HYDROCHLORIDE
     Indication: Product used for unknown indication
     Dosage: APPROXIMATELY 4080MG OF VERAPAMIL
     Route: 048

REACTIONS (5)
  - Hyperglycaemia [Recovering/Resolving]
  - Hypotension [Recovering/Resolving]
  - Respiratory rate increased [Recovering/Resolving]
  - Toxicity to various agents [Recovering/Resolving]
  - Overdose [Unknown]
